FAERS Safety Report 4604637-6 (Version None)
Quarter: 2005Q1

REPORT INFORMATION
  Report Type: 
  Country: None (occurrence: None)
  Receive Date: 20050116
  Receipt Date: 20041130
  Transmission Date: 20050727
  Serious: No
  Sender: FDA-Public Use
  Company Number: PHEH2004US11378

PATIENT
  Age: 74 Year
  Sex: Male

DRUGS (2)
  1. GLEEVEC [Suspect]
     Dosage: 500 MG, QD, ORAL
     Route: 048
     Dates: start: 20040714
  2. SPIRONOLACTONE [Suspect]
     Dosage: ORAL
     Route: 048

REACTIONS (2)
  - BREAST TENDERNESS [None]
  - NIPPLE PAIN [None]
